FAERS Safety Report 23087215 (Version 2)
Quarter: 2024Q2

REPORT INFORMATION
  Report Type: Spontaneous
  Country: JP (occurrence: JP)
  Receive Date: 20231020
  Receipt Date: 20240603
  Transmission Date: 20240716
  Serious: Yes (Hospitalization, Other)
  Sender: FDA-Public Use
  Company Number: None

PATIENT
  Age: 10 Year
  Sex: Female

DRUGS (1)
  1. PREDNISOLONE [Suspect]
     Active Substance: PREDNISOLONE
     Indication: Rheumatoid arthritis
     Dosage: UNK, (TREATED WITH PREDNISOLONE FROM THE AGE OF 4 TO 29 YEARS)
     Route: 065

REACTIONS (6)
  - Acute myocardial infarction [Unknown]
  - Dyslipidaemia [Unknown]
  - Acute coronary syndrome [Unknown]
  - Coronary artery stenosis [Unknown]
  - Arteriosclerosis coronary artery [Unknown]
  - Steroid diabetes [Unknown]
